FAERS Safety Report 10026631 (Version 1)
Quarter: 2014Q1

REPORT INFORMATION
  Report Type: Spontaneous
  Country: US (occurrence: US)
  Receive Date: 20140321
  Receipt Date: 20140321
  Transmission Date: 20141002
  Serious: No
  Sender: FDA-Public Use
  Company Number: US-009507513-1403USA007426

PATIENT
  Age: 61 Year
  Sex: Female

DRUGS (2)
  1. SINGULAIR [Suspect]
     Dosage: 1 DF, BID
     Route: 048
  2. ACCOLATE [Concomitant]
     Dosage: UNK

REACTIONS (5)
  - Drug ineffective [Unknown]
  - Faecal incontinence [Unknown]
  - Malaise [Unknown]
  - Fatigue [Unknown]
  - Lactose intolerance [Unknown]
